FAERS Safety Report 5260788-7 (Version None)
Quarter: 2007Q1

REPORT INFORMATION
  Report Type: 
  Country: None (occurrence: None)
  Receive Date: 20070309
  Receipt Date: 20070301
  Transmission Date: 20070707
  Serious: Yes (Other)
  Sender: FDA-Public Use
  Company Number: JP-MERCK-0703USA00564

PATIENT
  Age: 69 Year
  Sex: Female

DRUGS (11)
  1. FOSAMAX [Suspect]
     Indication: OSTEOPOROSIS
     Route: 048
     Dates: start: 20070101, end: 20070220
  2. ONEALFA [Suspect]
     Indication: OSTEOPOROSIS
     Route: 048
     Dates: start: 20070101, end: 20070220
  3. MOBIC [Suspect]
     Indication: ANALGESIC EFFECT
     Route: 048
     Dates: start: 20070101, end: 20070220
  4. INTEDARU [Concomitant]
     Route: 065
     Dates: start: 20061201, end: 20070220
  5. CIBENOL [Concomitant]
     Route: 065
     Dates: start: 20061201, end: 20070220
  6. GASTROMET [Concomitant]
     Route: 065
     Dates: start: 20061201, end: 20070220
  7. CEROCRAL [Concomitant]
     Route: 065
     Dates: start: 20061201, end: 20070220
  8. NITRAZEPAM [Concomitant]
     Route: 065
     Dates: start: 20061201, end: 20070220
  9. DEPAS [Concomitant]
     Route: 065
     Dates: start: 20061201, end: 20070220
  10. SUCRALFATE [Concomitant]
     Route: 065
     Dates: start: 20061201, end: 20070220
  11. SIFROL [Concomitant]
     Route: 065
     Dates: start: 20061201, end: 20070220

REACTIONS (2)
  - BLOOD CREATINE PHOSPHOKINASE INCREASED [None]
  - HEPATITIS [None]
